FAERS Safety Report 6082760-X (Version None)
Quarter: 2009Q1

REPORT INFORMATION
  Report Type: 
  Country: None (occurrence: None)
  Receive Date: 20090218
  Receipt Date: 20090206
  Transmission Date: 20090719
  Serious: Yes (Other)
  Sender: FDA-Public Use
  Company Number: US-PFIZER INC-2008151337

PATIENT

DRUGS (2)
  1. LYRICA [Suspect]
     Dosage: 75 MG, UNK
     Dates: start: 20081204, end: 20081204
  2. ACE INHIBITOR NOS [Concomitant]

REACTIONS (3)
  - ERYTHEMA [None]
  - OEDEMA PERIPHERAL [None]
  - PAIN IN EXTREMITY [None]
